FAERS Safety Report 6449859-7 (Version None)
Quarter: 2009Q4

REPORT INFORMATION
  Report Type: 
  Country: None (occurrence: None)
  Receive Date: 20091122
  Receipt Date: 20091115
  Transmission Date: 20100525
  Serious: Yes (Death, Life-Threatening, Other)
  Sender: FDA-Public Use
  Company Number: PH-ABBOTT-09P-128-0601689-00

PATIENT
  Age: 64 Year
  Sex: Female

DRUGS (3)
  1. SEVOFLURANE [Suspect]
     Indication: ANAESTHESIA
     Dosage: 1.5 MAC BY INHALATION
     Route: 055
     Dates: start: 20091001, end: 20091001
  2. PROPOFOL [Suspect]
     Indication: INDUCTION OF ANAESTHESIA
     Route: 042
     Dates: start: 20091001, end: 20091001
  3. FENTANYL-100 [Suspect]
     Indication: INDUCTION OF ANAESTHESIA
     Route: 042
     Dates: start: 20091001, end: 20091001

REACTIONS (5)
  - COMA [None]
  - DYSPNOEA [None]
  - HYPERSENSITIVITY [None]
  - RESPIRATORY FAILURE [None]
  - TRACHEAL OEDEMA [None]
